FAERS Safety Report 5454376-7 (Version None)
Quarter: 2007Q3

REPORT INFORMATION
  Report Type: 
  Country: None (occurrence: None)
  Receive Date: 20070917
  Receipt Date: 20060609
  Transmission Date: 20080115
  Serious: No
  Sender: FDA-Public Use
  Company Number: US-ASTRAZENECA-2006UW12438

PATIENT
  Age: 50 Year
  Sex: Male
  Weight: 90.7 kg

DRUGS (2)
  1. SEROQUEL [Suspect]
     Indication: SCHIZOPHRENIA
     Route: 048
  2. LIPITOR [Concomitant]

REACTIONS (5)
  - DRY MOUTH [None]
  - DYSGEUSIA [None]
  - HYPERHIDROSIS [None]
  - LETHARGY [None]
  - NERVOUSNESS [None]
